FAERS Safety Report 9730678 (Version 1)
Quarter: 2013Q4

REPORT INFORMATION
  Report Type: Spontaneous
  Country: US (occurrence: US)
  Receive Date: 20131202
  Receipt Date: 20131202
  Transmission Date: 20140711
  Serious: Yes (Other)
  Sender: FDA-Public Use
  Company Number: US-AMGEN-USASP2013082621

PATIENT
  Age: 57 Year
  Sex: Female
  Weight: 81.63 kg

DRUGS (2)
  1. ENBREL [Suspect]
     Indication: RHEUMATOID ARTHRITIS
     Dosage: UNK
     Route: 065
     Dates: end: 2013
  2. DOXAZOSIN [Concomitant]
     Indication: HYPERTENSION
     Dosage: 2 MG, UNK

REACTIONS (2)
  - Scleritis [Unknown]
  - Hypersensitivity [Recovered/Resolved]
